FAERS Safety Report 17865506 (Version 1)
Quarter: 2020Q2

REPORT INFORMATION
  Report Type: Spontaneous
  Country: US (occurrence: US)
  Receive Date: 20200605
  Receipt Date: 20200605
  Transmission Date: 20200714
  Serious: Yes (Death)
  Sender: FDA-Public Use
  Company Number: None

PATIENT
  Age: 74 Year
  Sex: Female
  Weight: 83.4 kg

DRUGS (8)
  1. REMDESIVIR. [Suspect]
     Active Substance: REMDESIVIR
     Indication: SARS-COV-2 TEST POSITIVE
     Dosage: ?          OTHER FREQUENCY:ONCE;?
     Route: 041
     Dates: start: 20200529, end: 20200529
  2. AMIODARONE DRIP [Concomitant]
     Dates: start: 20200528, end: 20200530
  3. CEFEPIME 1G IV Q24H [Concomitant]
     Dates: start: 20200528, end: 20200530
  4. VANCOMYCIN 1G IV Q12H [Concomitant]
     Dates: start: 20200528, end: 20200530
  5. VASOPRESSIN DRIP [Concomitant]
     Dates: start: 20200529, end: 20200530
  6. PROPOFOL DRIP [Concomitant]
     Active Substance: PROPOFOL
     Dates: start: 20200528, end: 20200530
  7. NOREPINEPHRINE DRIP [Concomitant]
     Dates: start: 20200528, end: 20200530
  8. PHYTONADIONE 10 MG SC [Concomitant]
     Dates: start: 20200530, end: 20200530

REACTIONS (5)
  - Aspartate aminotransferase increased [None]
  - International normalised ratio increased [None]
  - Blood creatinine increased [None]
  - Circulatory collapse [None]
  - Cardiac arrest [None]

NARRATIVE: CASE EVENT DATE: 20200530
